FAERS Safety Report 24004839 (Version 1)
Quarter: 2024Q2

REPORT INFORMATION
  Report Type: Other
  Country: US (occurrence: US)
  Receive Date: 20240624
  Receipt Date: 20240624
  Transmission Date: 20240716
  Serious: No
  Sender: FDA-Public Use
  Company Number: US-APOTEX-2024AP007191

PATIENT
  Age: 37 Year
  Sex: Female

DRUGS (5)
  1. EMTRICITABINE\TENOFOVIR [Suspect]
     Active Substance: EMTRICITABINE\TENOFOVIR
     Indication: Antiretroviral therapy
     Dosage: UNK, TOTAL DAILY DOSE- 1 (UNIT UNSPECIFIED)
     Route: 048
  2. LAMIVUDINE [Suspect]
     Active Substance: LAMIVUDINE
     Indication: Antiretroviral therapy
     Dosage: UNK, TOTAL DAILY DOSE- 1 (UNIT UNSPECIFIED)
     Route: 048
  3. DOLUTEGRAVIR [Suspect]
     Active Substance: DOLUTEGRAVIR
     Indication: Antiretroviral therapy
     Dosage: UNK, TOTAL DAILY DOSE- 1 (UNIT UNSPECIFIED)
     Route: 048
  4. ZIDOVUDINE [Suspect]
     Active Substance: ZIDOVUDINE
     Indication: Antiretroviral therapy
     Dosage: UNK, TOTAL DAILY DOSE- 2 (UNIT UNSPECIFIED), TREATMENT DURATION- LESS THAN 1 WEEK
     Route: 042
     Dates: start: 202306, end: 202306
  5. ZIDOVUDINE [Suspect]
     Active Substance: ZIDOVUDINE
     Dosage: UNK, TOTAL DAILY DOSE- 1 (UNIT UNSPECIFIED), TREATMENT DURATION- LESS THAN 1 WEEK
     Route: 042
     Dates: start: 202306, end: 202306

REACTIONS (2)
  - Maternal exposure during pregnancy [Unknown]
  - No adverse event [Unknown]

NARRATIVE: CASE EVENT DATE: 20220101
